FAERS Safety Report 24131854 (Version 1)
Quarter: 2024Q3

REPORT INFORMATION
  Report Type: Spontaneous
  Country: US (occurrence: US)
  Receive Date: 20240724
  Receipt Date: 20240724
  Transmission Date: 20241017
  Serious: Yes (Hospitalization)
  Sender: GLAND PHARMA
  Company Number: US-GLANDPHARMA-US-2024GLNLIT00503

PATIENT
  Age: 64 Year
  Sex: Male

DRUGS (2)
  1. DOXORUBICIN HYDROCHLORIDE [Suspect]
     Active Substance: DOXORUBICIN HYDROCHLORIDE
     Indication: Hepatocellular carcinoma
     Route: 065
  2. ALCOHOL [Suspect]
     Active Substance: ALCOHOL
     Indication: Hepatocellular carcinoma
     Dosage: 15 CC
     Route: 065

REACTIONS (2)
  - Pleural effusion [Unknown]
  - Product use in unapproved indication [Unknown]
